FAERS Safety Report 5320783-6 (Version None)
Quarter: 2007Q2

REPORT INFORMATION
  Report Type: 
  Country: None (occurrence: None)
  Receive Date: 20070507
  Receipt Date: 20070423
  Transmission Date: 20071010
  Serious: Yes (Hospitalization)
  Sender: FDA-Public Use
  Company Number: 2007BI005217

PATIENT
  Age: 56 Year
  Sex: Female

DRUGS (12)
  1. AVONEX [Suspect]
     Indication: MULTIPLE SCLEROSIS
     Dosage: 30 UG;QW;IM
     Route: 030
     Dates: start: 20000101, end: 20050101
  2. AVONEX [Suspect]
     Indication: MULTIPLE SCLEROSIS
     Dosage: 30 UG;QW;IM
     Route: 030
     Dates: start: 20050101
  3. TOPAMAX [Concomitant]
  4. NEURONTIN [Concomitant]
  5. TEGRETOL [Concomitant]
  6. PREVACID [Concomitant]
  7. BACLOFEN [Concomitant]
  8. VYTORIN [Concomitant]
  9. ZOLOFT [Concomitant]
  10. LEVOXYL [Concomitant]
  11. BONIVA [Concomitant]
  12. TYLENOL [Concomitant]

REACTIONS (1)
  - ARTHRITIS [None]
